FAERS Safety Report 10075852 (Version 1)
Quarter: 2014Q2

REPORT INFORMATION
  Report Type: Spontaneous
  Country: FR (occurrence: FR)
  Receive Date: 20140414
  Receipt Date: 20140414
  Transmission Date: 20141212
  Serious: Yes (Other)
  Sender: FDA-Public Use
  Company Number: FR-PFIZER INC-2014103383

PATIENT
  Age: 49 Year
  Sex: Female

DRUGS (1)
  1. CABERGOLINE [Suspect]
     Indication: PARKINSON^S DISEASE
     Dosage: 5 MG, DAILY

REACTIONS (1)
  - Mitral valve disease [Unknown]
